FAERS Safety Report 7213100-8 (Version None)
Quarter: 2010Q4

REPORT INFORMATION
  Report Type: 
  Country: None (occurrence: None)
  Receive Date: 20101227
  Receipt Date: 20101213
  Transmission Date: 20110411
  Serious: Yes (Hospitalization)
  Sender: FDA-Public Use
  Company Number: 2010010020

PATIENT
  Age: 79 Year
  Sex: Female

DRUGS (22)
  1. DEMADEX [Suspect]
     Indication: POLYURIA
     Dosage: 20 MG (20 MG, 1 IN 1 D), ORAL, 20 MG (20 MG, 1 IN 1 D), ORAL
     Route: 048
     Dates: start: 20090827, end: 20090831
  2. DEMADEX [Suspect]
     Indication: POLYURIA
     Dosage: 20 MG (20 MG, 1 IN 1 D), ORAL, 20 MG (20 MG, 1 IN 1 D), ORAL
     Route: 048
     Dates: start: 20090917, end: 20090918
  3. TANEZUMAB (TANEZUMAB) [Suspect]
     Dosage: 1 IN 8 WK, IV
     Route: 042
     Dates: start: 20090724
  4. RANEXA (RANOLAZINE HCL) [Concomitant]
  5. NORVASC [Concomitant]
  6. BENICAR [Concomitant]
  7. COREG [Concomitant]
  8. HYDROCHLOROTHIAZIDE/TRIAMTERENE (HYDROCHLOROTHIAZIDE, TRIAMTERENE) [Concomitant]
  9. GLIBENCLAMIDE/METFORMIN (GLIBENCLAMIDE, METFORMIN) [Concomitant]
  10. SITAGLIPTIN (SITAGLIPTIN) [Concomitant]
  11. CELEBREX [Concomitant]
  12. VITAMIN B12 [Concomitant]
  13. QUESTRAN (CHOLESTYRAMINE RESIN) [Concomitant]
  14. CALCIUM (CALCIUM) [Concomitant]
  15. OMEGA-3 TRIGLYCERIDES (OMEGA-3, TRIGLYCERIDES) [Concomitant]
  16. NIACIN [Concomitant]
  17. ASPIRIN [Concomitant]
  18. IMODIUM [Concomitant]
  19. PEPTO-BISMOL (BISMUTH SUBSALICYLATE) [Concomitant]
  20. VITAMIN D [Concomitant]
  21. TUMS (CALCIUM CARBONATE) [Concomitant]
  22. CENTRUM SILVER [Concomitant]

REACTIONS (9)
  - ANAEMIA [None]
  - ATRIOVENTRICULAR BLOCK FIRST DEGREE [None]
  - DEHYDRATION [None]
  - DIARRHOEA [None]
  - DIZZINESS [None]
  - ELECTROCARDIOGRAM CHANGE [None]
  - FATIGUE [None]
  - HYPERKALAEMIA [None]
  - RENAL FAILURE ACUTE [None]
